FAERS Safety Report 5850781-5 (Version None)
Quarter: 2008Q3

REPORT INFORMATION
  Report Type: 
  Country: None (occurrence: None)
  Receive Date: 20080820
  Receipt Date: 20080808
  Transmission Date: 20090109
  Serious: No
  Sender: FDA-Public Use
  Company Number: JP-ELI_LILLY_AND_COMPANY-JP200807001790

PATIENT
  Age: 55 Year
  Sex: Male

DRUGS (3)
  1. ALIMTA [Suspect]
     Indication: PLEURAL MESOTHELIOMA MALIGNANT RECURRENT
     Dosage: 500 MG/M2, OTHER
     Route: 042
     Dates: start: 20080610
  2. PANVITAN [Concomitant]
     Dosage: 1 G, DAILY (1/D)
     Route: 048
     Dates: start: 20080602
  3. HYDROXOCOBALAMIN ACETATE [Concomitant]
     Dosage: 1 MG, UNKNOWN
     Route: 030
     Dates: start: 20080602

REACTIONS (1)
  - ALANINE AMINOTRANSFERASE INCREASED [None]
